FAERS Safety Report 5883919-4 (Version None)
Quarter: 2008Q3

REPORT INFORMATION
  Report Type: 
  Country: None (occurrence: None)
  Receive Date: 20080915
  Receipt Date: 20080902
  Transmission Date: 20090109
  Serious: Yes (Other)
  Sender: FDA-Public Use
  Company Number: US-ELI_LILLY_AND_COMPANY-US200808004183

PATIENT
  Age: 66 Year
  Sex: Male

DRUGS (10)
  1. XIGRIS [Suspect]
     Indication: SEPSIS
     Dosage: 24 UG, OTHER
     Dates: start: 20080818, end: 20080801
  2. DIFLUCAN [Concomitant]
  3. TOBRAMYCIN [Concomitant]
     Indication: SEPSIS
  4. PROTONIX [Concomitant]
     Indication: PROPHYLAXIS
  5. MEROPENEM [Concomitant]
  6. LEVAQUIN [Concomitant]
  7. VANCOMYCIN HCL [Concomitant]
     Route: 042
  8. NEOSYNEPHRINE [Concomitant]
     Dosage: 200 UG, UNK
  9. DOPAMINE HCL [Concomitant]
     Dosage: 20 UG, UNK
  10. LEVOPHED [Concomitant]
     Dosage: 20 UG, UNK

REACTIONS (3)
  - BLOOD ALKALINE PHOSPHATASE [None]
  - LIVER FUNCTION TEST ABNORMAL [None]
  - OBSTRUCTION [None]
